FAERS Safety Report 6922155-7 (Version None)
Quarter: 2010Q3

REPORT INFORMATION
  Report Type: 
  Country: None (occurrence: None)
  Receive Date: 20100812
  Receipt Date: 20100806
  Transmission Date: 20110219
  Serious: Yes (Hospitalization)
  Sender: FDA-Public Use
  Company Number: US-MERCK-1008USA01160

PATIENT
  Age: 24 Month
  Sex: Male

DRUGS (1)
  1. IVOMEC [Suspect]
     Indication: DRUG ADMINISTRATION ERROR
     Route: 048
     Dates: start: 20100701, end: 20100701

REACTIONS (2)
  - ACCIDENTAL EXPOSURE [None]
  - LYMPHADENOPATHY [None]
